FAERS Safety Report 24245433 (Version 1)
Quarter: 2024Q3

REPORT INFORMATION
  Report Type: Spontaneous
  Country: RU (occurrence: None)
  Receive Date: 20240824
  Receipt Date: 20240824
  Transmission Date: 20241016
  Serious: Yes (Life-Threatening, Hospitalization, Other)
  Sender: ASTRAZENECA
  Company Number: 2024A191260

PATIENT
  Age: 1 Month
  Sex: Male

DRUGS (2)
  1. BUDESONIDE [Suspect]
     Active Substance: BUDESONIDE
     Route: 055
  2. INTERFERON ALFA-2B [Concomitant]
     Active Substance: INTERFERON ALFA-2B
     Route: 054

REACTIONS (7)
  - Condition aggravated [Recovering/Resolving]
  - Cough [Recovering/Resolving]
  - Apnoea [Recovering/Resolving]
  - Vomiting [Recovering/Resolving]
  - Breath sounds abnormal [Recovering/Resolving]
  - Off label use [Recovering/Resolving]
  - Off label use [Recovering/Resolving]
